FAERS Safety Report 12723141 (Version 1)
Quarter: 2016Q3

REPORT INFORMATION
  Report Type: Spontaneous
  Country: US (occurrence: US)
  Receive Date: 20160908
  Receipt Date: 20160908
  Transmission Date: 20161109
  Serious: Yes (Hospitalization)
  Sender: FDA-Public Use
  Company Number: US-ASTRAZENECA-2016SE94494

PATIENT
  Age: 85 Year
  Sex: Female

DRUGS (1)
  1. BRILINTA [Suspect]
     Active Substance: TICAGRELOR
     Dosage: 90.0MG UNKNOWN
     Route: 048
     Dates: start: 201607

REACTIONS (4)
  - Haemorrhage subcutaneous [Unknown]
  - Contusion [Unknown]
  - Neuropathy peripheral [Unknown]
  - Pruritus [Unknown]
